FAERS Safety Report 8211425-0 (Version None)
Quarter: 2012Q1

REPORT INFORMATION
  Report Type: 
  Country: None (occurrence: None)
  Receive Date: 20120315
  Receipt Date: 20120308
  Transmission Date: 20120608
  Serious: Yes (Other)
  Sender: FDA-Public Use
  Company Number: GB-PFIZER INC-2012062798

PATIENT
  Age: 66 Year
  Sex: Female

DRUGS (1)
  1. NEURONTIN [Suspect]
     Indication: NEURALGIA
     Dosage: UNK
     Dates: end: 20120101

REACTIONS (6)
  - PARANOIA [None]
  - EYE PRURITUS [None]
  - NASAL DISCOMFORT [None]
  - OCULAR HYPERAEMIA [None]
  - PANIC REACTION [None]
  - TREMOR [None]
